FAERS Safety Report 6884627-3 (Version None)
Quarter: 2010Q3

REPORT INFORMATION
  Report Type: 
  Country: None (occurrence: None)
  Receive Date: 20100729
  Receipt Date: 20070919
  Transmission Date: 20110219
  Serious: No
  Sender: FDA-Public Use
  Company Number: US-PFIZER INC-2007058905

PATIENT
  Age: 73 Year
  Sex: Female

DRUGS (3)
  1. CELEBREX [Suspect]
     Indication: ARTHRITIS
     Dates: start: 20070716
  2. CORTISONE [Concomitant]
     Dates: start: 20070716, end: 20070716
  3. VITAMIN E [Concomitant]

REACTIONS (1)
  - TENSION HEADACHE [None]
